FAERS Safety Report 10196215 (Version 2)
Quarter: 2014Q4

REPORT INFORMATION
  Report Type: Spontaneous
  Country: FI (occurrence: FI)
  Receive Date: 20140527
  Receipt Date: 20141223
  Transmission Date: 20150528
  Serious: Yes (Hospitalization)
  Sender: FDA-Public Use
  Company Number: FI-AMGEN-FINSP2014035836

PATIENT
  Age: 66 Year
  Sex: Male

DRUGS (3)
  1. FURESIS [Concomitant]
     Active Substance: FUROSEMIDE
     Indication: PERIPHERAL SWELLING
     Dosage: UNK
  2. FOLIC ACID. [Concomitant]
     Active Substance: FOLIC ACID
     Dosage: 1 MG, QWK, WILL BE RAISED TO A DOSE OF 5 MG / WEEKLY.
  3. PROLIA [Suspect]
     Active Substance: DENOSUMAB
     Indication: OSTEOPOROSIS
     Dosage: 60 MG, Q6MO
     Route: 058
     Dates: start: 20130326

REACTIONS (7)
  - Skin hypertrophy [Recovering/Resolving]
  - Wound complication [Recovering/Resolving]
  - Cellulitis [Recovering/Resolving]
  - Skin ulcer [Recovering/Resolving]
  - Burning sensation [Recovering/Resolving]
  - Oedema peripheral [Unknown]
  - Arthralgia [Recovering/Resolving]

NARRATIVE: CASE EVENT DATE: 20140122
